FAERS Safety Report 21153506 (Version 2)
Quarter: 2022Q3

REPORT INFORMATION
  Report Type: Spontaneous
  Country: JP (occurrence: JP)
  Receive Date: 20220731
  Receipt Date: 20220809
  Transmission Date: 20221027
  Serious: Yes (Death)
  Sender: FDA-Public Use
  Company Number: JP-ALLERGAN-2224540US

PATIENT

DRUGS (1)
  1. ASENAPINE MALEATE [Suspect]
     Active Substance: ASENAPINE MALEATE
     Indication: Product used for unknown indication
     Route: 060

REACTIONS (2)
  - Death [Fatal]
  - Off label use [Unknown]
